FAERS Safety Report 11304823 (Version 1)
Quarter: 2015Q3

REPORT INFORMATION
  Report Type: Spontaneous
  Country: FR (occurrence: FR)
  Receive Date: 20150723
  Receipt Date: 20150723
  Transmission Date: 20151125
  Serious: Yes (Hospitalization)
  Sender: FDA-Public Use
  Company Number: FR-PFIZER INC-2015240760

PATIENT
  Age: 51 Year
  Sex: Male

DRUGS (5)
  1. CETIRIZINE HYDROCHLORIDE. [Suspect]
     Active Substance: CETIRIZINE HYDROCHLORIDE
     Dosage: 10 MG, 1X/DAY(IN THE EVENING)
     Route: 048
  2. LIPUR [Suspect]
     Active Substance: GEMFIBROZIL
     Dosage: 900 MG, 1X/DAY (IN THE EVENING) FOR AROUND 1 YEAR
     Route: 048
  3. REMICADE [Suspect]
     Active Substance: INFLIXIMAB
     Indication: PSORIASIS
     Dosage: 400 MG, ONCE EVERY 7 WEEKS
     Route: 042
     Dates: start: 2006
  4. METFORMIN HCL [Suspect]
     Active Substance: METFORMIN HYDROCHLORIDE
     Dosage: 500 MG, 2X/DAY(MORNING AND EVENING)
     Route: 048
  5. ODRIK [Suspect]
     Active Substance: TRANDOLAPRIL
     Dosage: 4 MG, 1X/DAY(IN THE MORNING),
     Route: 048

REACTIONS (1)
  - Myocardial infarction [Recovering/Resolving]

NARRATIVE: CASE EVENT DATE: 20150629
